FAERS Safety Report 9016759 (Version 1)
Quarter: 2013Q1

REPORT INFORMATION
  Report Type: Spontaneous
  Country: US (occurrence: US)
  Receive Date: 20130116
  Receipt Date: 20130116
  Transmission Date: 20140127
  Serious: No
  Sender: FDA-Public Use
  Company Number: US-PFIZER INC-2013017889

PATIENT
  Age: 50 Year
  Sex: Female
  Weight: 70.3 kg

DRUGS (2)
  1. LYRICA [Suspect]
     Indication: FIBROMYALGIA
     Dosage: 150 MG, 3X/DAY
     Dates: start: 201107
  2. LYRICA [Suspect]
     Dosage: 150MG DAILY AND SOMETIMES 150MG TWO TIMES

REACTIONS (1)
  - Intentional drug misuse [Unknown]
